FAERS Safety Report 19741575 (Version 1)
Quarter: 2021Q3

REPORT INFORMATION
  Report Type: Other
  Country: ES (occurrence: ES)
  Receive Date: 20210825
  Receipt Date: 20210825
  Transmission Date: 20211014
  Serious: Yes (Other)
  Sender: FDA-Public Use
  Company Number: ES-ROCHE-2893399

PATIENT

DRUGS (3)
  1. BEVACIZUMAB. [Suspect]
     Active Substance: BEVACIZUMAB
     Indication: NON-SMALL CELL LUNG CANCER
     Route: 065
  2. CARBOPLATIN. [Suspect]
     Active Substance: CARBOPLATIN
     Indication: NON-SMALL CELL LUNG CANCER
     Route: 065
  3. PACLITAXEL. [Suspect]
     Active Substance: PACLITAXEL
     Indication: NON-SMALL CELL LUNG CANCER
     Route: 065

REACTIONS (28)
  - Nervous system disorder [Unknown]
  - Hypertensive crisis [Unknown]
  - Poisoning [Unknown]
  - Metabolic disorder [Unknown]
  - Mental disorder [Unknown]
  - Injury [Unknown]
  - Anaemia [Unknown]
  - Fatigue [Unknown]
  - Skin disorder [Unknown]
  - Ill-defined disorder [Unknown]
  - Gastrointestinal disorder [Unknown]
  - Febrile neutropenia [Unknown]
  - Cardiac failure acute [Unknown]
  - Hypersensitivity [Unknown]
  - Cardiac disorder [Unknown]
  - Neutropenia [Unknown]
  - Musculoskeletal disorder [Unknown]
  - Eye disorder [Unknown]
  - Procedural complication [Unknown]
  - Respiratory disorder [Unknown]
  - Infection [Unknown]
  - Thrombocytopenia [Unknown]
  - Angiopathy [Unknown]
  - Immune system disorder [Unknown]
  - Renal disorder [Unknown]
  - Administration site reaction [Unknown]
  - Hypertension [Unknown]
  - Ear disorder [Unknown]
